FAERS Safety Report 12999739 (Version 1)
Quarter: 2016Q4

REPORT INFORMATION
  Report Type: Spontaneous
  Country: US (occurrence: US)
  Receive Date: 20161205
  Receipt Date: 20161205
  Transmission Date: 20170207
  Serious: No
  Sender: FDA-Public Use
  Company Number: US-FRI-1000085919

PATIENT
  Age: 5 Decade
  Sex: Female

DRUGS (1)
  1. TEFLARO [Suspect]
     Active Substance: CEFTAROLINE FOSAMIL
     Indication: OSTEOMYELITIS
     Dosage: UNK
     Route: 042
     Dates: start: 20160619, end: 20160629

REACTIONS (2)
  - Alanine aminotransferase increased [Recovering/Resolving]
  - Off label use [Recovered/Resolved]

NARRATIVE: CASE EVENT DATE: 201606
